FAERS Safety Report 20368416 (Version 2)
Quarter: 2024Q3

REPORT INFORMATION
  Report Type: Report from Study
  Country: US (occurrence: US)
  Receive Date: 20220124
  Receipt Date: 20240716
  Transmission Date: 20241017
  Serious: Yes (Hospitalization, Other)
  Sender: TAKEDA
  Company Number: US-TAKEDA-US-001029

PATIENT
  Age: 41 Year
  Sex: Male
  Weight: 77 kg

DRUGS (20)
  1. TEDUGLUTIDE [Suspect]
     Active Substance: TEDUGLUTIDE
     Indication: Short-bowel syndrome
     Dosage: UNK
     Route: 065
     Dates: start: 20140211
  2. TEDUGLUTIDE [Suspect]
     Active Substance: TEDUGLUTIDE
     Indication: Short-bowel syndrome
     Dosage: UNK
     Route: 065
     Dates: start: 20140211
  3. TEDUGLUTIDE [Suspect]
     Active Substance: TEDUGLUTIDE
     Indication: Short-bowel syndrome
     Dosage: UNK
     Route: 065
     Dates: start: 20140211
  4. TEDUGLUTIDE [Suspect]
     Active Substance: TEDUGLUTIDE
     Indication: Short-bowel syndrome
     Dosage: UNK
     Route: 065
     Dates: start: 20140211
  5. TEDUGLUTIDE [Suspect]
     Active Substance: TEDUGLUTIDE
     Dosage: 0.36 MILLILITER, QD
     Route: 058
     Dates: start: 20140421, end: 20140510
  6. TEDUGLUTIDE [Suspect]
     Active Substance: TEDUGLUTIDE
     Dosage: 0.36 MILLILITER, QD
     Route: 058
     Dates: start: 20140421, end: 20140510
  7. TEDUGLUTIDE [Suspect]
     Active Substance: TEDUGLUTIDE
     Dosage: 0.36 MILLILITER, QD
     Route: 058
     Dates: start: 20140421, end: 20140510
  8. TEDUGLUTIDE [Suspect]
     Active Substance: TEDUGLUTIDE
     Dosage: 0.36 MILLILITER, QD
     Route: 058
     Dates: start: 20140421, end: 20140510
  9. TEDUGLUTIDE [Suspect]
     Active Substance: TEDUGLUTIDE
     Dosage: UNK
     Route: 065
     Dates: start: 20191017
  10. TEDUGLUTIDE [Suspect]
     Active Substance: TEDUGLUTIDE
     Dosage: UNK
     Route: 065
     Dates: start: 20191017
  11. TEDUGLUTIDE [Suspect]
     Active Substance: TEDUGLUTIDE
     Dosage: UNK
     Route: 065
     Dates: start: 20191017
  12. TEDUGLUTIDE [Suspect]
     Active Substance: TEDUGLUTIDE
     Dosage: UNK
     Route: 065
     Dates: start: 20191017
  13. FOLIC ACID [Concomitant]
     Active Substance: FOLIC ACID
     Indication: Vitamin supplementation
     Dosage: 1 MILLIGRAM, QD
     Route: 065
  14. HUMIRA [Concomitant]
     Active Substance: ADALIMUMAB
     Indication: Crohn^s disease
     Dosage: 20 MILLIGRAM, Q2WEEKS
     Route: 065
     Dates: start: 2010
  15. MERCATOA [Concomitant]
     Dosage: 15 MILLIGRAM, QD
     Route: 065
  16. SELENIUM [Concomitant]
     Active Substance: SELENIUM
     Dosage: UNK
     Route: 065
  17. XARELTO [Concomitant]
     Active Substance: RIVAROXABAN
     Indication: Anticoagulant therapy
     Dosage: UNK
     Route: 065
     Dates: start: 2012
  18. MERCAPTOPURINE [Concomitant]
     Active Substance: MERCAPTOPURINE
     Indication: Crohn^s disease
     Dosage: UNK
     Route: 065
  19. LAMICTAL [Concomitant]
     Active Substance: LAMOTRIGINE
     Indication: Depression
     Dosage: UNK
     Route: 065
  20. OPIUM TINCTURE [Concomitant]
     Active Substance: MORPHINE
     Indication: Diarrhoea
     Dosage: UNK
     Route: 065

REACTIONS (9)
  - Haematochezia [Recovered/Resolved]
  - Blood iron decreased [Recovering/Resolving]
  - Dizziness [Recovering/Resolving]
  - Malaise [Recovered/Resolved]
  - Weight increased [Recovered/Resolved]
  - Weight decreased [Recovered/Resolved]
  - Diarrhoea [Unknown]
  - Abdominal pain upper [Recovered/Resolved]
  - Abdominal distension [Recovered/Resolved]

NARRATIVE: CASE EVENT DATE: 20140510
